FAERS Safety Report 9010408 (Version 1)
Quarter: 2013Q1

REPORT INFORMATION
  Report Type: Spontaneous
  Country: PT (occurrence: PT)
  Receive Date: 20130109
  Receipt Date: 20130109
  Transmission Date: 20140127
  Serious: Yes (Other)
  Sender: FDA-Public Use
  Company Number: PT-TEVA-378993ISR

PATIENT
  Age: 80 Year
  Sex: Male

DRUGS (5)
  1. BICALUTAMIDE [Suspect]
     Indication: NEOPLASM PROSTATE
     Route: 048
     Dates: start: 20121122, end: 20121125
  2. URSOFALK [Concomitant]
     Indication: CHOLELITHIASIS
     Route: 048
  3. TROMALYT 150 MG [Concomitant]
     Indication: PROPHYLAXIS
     Route: 048
  4. DUSPATAL RETARD [Concomitant]
     Indication: ABDOMINAL PAIN
     Route: 048
  5. BUSCOPAN [Concomitant]
     Indication: ABDOMINAL PAIN
     Route: 048

REACTIONS (7)
  - Asthenia [Recovered/Resolved]
  - Tachycardia [Recovered/Resolved]
  - Malaise [Recovered/Resolved]
  - Decreased appetite [Recovered/Resolved]
  - Myalgia [Recovered/Resolved]
  - Headache [Recovered/Resolved]
  - Confusional state [Recovered/Resolved]
